FAERS Safety Report 25631824 (Version 1)
Quarter: 2025Q3

REPORT INFORMATION
  Report Type: Other
  Country: CA (occurrence: CA)
  Receive Date: 20250801
  Receipt Date: 20250801
  Transmission Date: 20251020
  Serious: Yes (Death, Life-Threatening, Hospitalization, Disabling, Congenital Anomaly, Other)
  Sender: BIOCON
  Company Number: CA-BIOCON BIOLOGICS LIMITED-BBL2025004048

PATIENT

DRUGS (80)
  1. ADALIMUMAB [Suspect]
     Active Substance: ADALIMUMAB
     Indication: Rheumatoid arthritis
     Route: 065
  2. ADALIMUMAB [Suspect]
     Active Substance: ADALIMUMAB
     Route: 048
  3. ADALIMUMAB [Suspect]
     Active Substance: ADALIMUMAB
     Route: 058
  4. ADALIMUMAB [Suspect]
     Active Substance: ADALIMUMAB
     Route: 058
  5. ADALIMUMAB [Suspect]
     Active Substance: ADALIMUMAB
     Route: 058
  6. ADALIMUMAB [Suspect]
     Active Substance: ADALIMUMAB
     Route: 058
  7. METHOTREXATE [Suspect]
     Active Substance: METHOTREXATE
     Indication: Rheumatoid arthritis
     Dosage: 25 MILLIGRAM, QWEEK
     Route: 048
  8. METHOTREXATE [Suspect]
     Active Substance: METHOTREXATE
     Dosage: UNK UNK, QD
     Route: 065
  9. METHOTREXATE [Suspect]
     Active Substance: METHOTREXATE
     Dosage: UNK UNK, QD
     Route: 048
  10. METHOTREXATE [Suspect]
     Active Substance: METHOTREXATE
     Route: 058
  11. METHOTREXATE [Suspect]
     Active Substance: METHOTREXATE
     Route: 065
  12. METHOTREXATE [Suspect]
     Active Substance: METHOTREXATE
     Dosage: 15 MILLIGRAM, QD
     Route: 048
  13. METHOTREXATE [Suspect]
     Active Substance: METHOTREXATE
     Dosage: 25 MILLIGRAM, QWEEK
     Route: 013
  14. METHOTREXATE [Suspect]
     Active Substance: METHOTREXATE
     Dosage: 2 GRAM, QD
     Route: 048
  15. METHOTREXATE [Suspect]
     Active Substance: METHOTREXATE
     Route: 065
  16. METHOTREXATE [Suspect]
     Active Substance: METHOTREXATE
     Route: 058
  17. METHOTREXATE [Suspect]
     Active Substance: METHOTREXATE
     Route: 048
  18. METHOTREXATE [Suspect]
     Active Substance: METHOTREXATE
     Route: 013
  19. METHOTREXATE [Suspect]
     Active Substance: METHOTREXATE
     Route: 048
  20. METHOTREXATE [Suspect]
     Active Substance: METHOTREXATE
     Dosage: 25 MILLIGRAM, QD
     Route: 048
  21. METHOTREXATE [Suspect]
     Active Substance: METHOTREXATE
     Dosage: 50 MILLIGRAM, QD
     Route: 048
  22. METHOTREXATE [Suspect]
     Active Substance: METHOTREXATE
     Dosage: 20 MILLIGRAM, QD
     Route: 048
  23. METHOTREXATE [Suspect]
     Active Substance: METHOTREXATE
     Dosage: 20 MILLIGRAM, QWEEK
     Route: 065
  24. METHOTREXATE [Suspect]
     Active Substance: METHOTREXATE
     Route: 065
  25. METHOTREXATE [Suspect]
     Active Substance: METHOTREXATE
     Dosage: 25 MILLIGRAM, QWEEK
     Route: 058
  26. METHOTREXATE [Suspect]
     Active Substance: METHOTREXATE
     Dosage: 20 MILLIGRAM, QD
     Route: 065
  27. METHOTREXATE [Suspect]
     Active Substance: METHOTREXATE
     Route: 065
  28. METHOTREXATE [Suspect]
     Active Substance: METHOTREXATE
     Route: 048
  29. METHOTREXATE [Suspect]
     Active Substance: METHOTREXATE
     Dosage: 20 MILLIGRAM, QWEEK
     Route: 013
  30. METHOTREXATE [Suspect]
     Active Substance: METHOTREXATE
     Route: 058
  31. METHOTREXATE [Suspect]
     Active Substance: METHOTREXATE
     Route: 048
  32. METHOTREXATE [Suspect]
     Active Substance: METHOTREXATE
     Route: 048
  33. METHOTREXATE [Suspect]
     Active Substance: METHOTREXATE
     Route: 065
  34. METHOTREXATE [Suspect]
     Active Substance: METHOTREXATE
     Route: 048
  35. METHOTREXATE [Suspect]
     Active Substance: METHOTREXATE
     Dosage: UNK UNK, QD
     Route: 065
  36. METHOTREXATE [Suspect]
     Active Substance: METHOTREXATE
     Route: 048
  37. METHOTREXATE [Suspect]
     Active Substance: METHOTREXATE
     Route: 013
  38. METHOTREXATE [Suspect]
     Active Substance: METHOTREXATE
     Route: 048
  39. METHOTREXATE [Suspect]
     Active Substance: METHOTREXATE
     Route: 048
  40. METHOTREXATE [Suspect]
     Active Substance: METHOTREXATE
     Route: 013
  41. METHOTREXATE [Suspect]
     Active Substance: METHOTREXATE
     Route: 048
  42. METHOTREXATE [Suspect]
     Active Substance: METHOTREXATE
     Route: 048
  43. METHOTREXATE [Suspect]
     Active Substance: METHOTREXATE
     Route: 051
  44. DICLOFENAC SODIUM [Suspect]
     Active Substance: DICLOFENAC SODIUM
     Indication: Product used for unknown indication
     Route: 065
  45. DICLOFENAC SODIUM [Suspect]
     Active Substance: DICLOFENAC SODIUM
     Route: 065
  46. DICLOFENAC SODIUM [Suspect]
     Active Substance: DICLOFENAC SODIUM
     Route: 065
  47. AIMOVIG [Suspect]
     Active Substance: ERENUMAB-AOOE
     Indication: Migraine
     Route: 065
  48. ERENUMAB [Suspect]
     Active Substance: ERENUMAB
     Indication: Migraine
     Route: 065
  49. COSENTYX [Suspect]
     Active Substance: SECUKINUMAB
     Indication: Psoriatic arthropathy
     Route: 065
  50. COSENTYX [Suspect]
     Active Substance: SECUKINUMAB
     Indication: Psoriatic arthropathy
     Route: 065
  51. DICLOFENAC [Suspect]
     Active Substance: DICLOFENAC
     Indication: Product used for unknown indication
     Route: 065
  52. DICLOFENAC POTASSIUM [Suspect]
     Active Substance: DICLOFENAC POTASSIUM
     Indication: Product used for unknown indication
     Route: 065
  53. DICLOFENAC POTASSIUM [Suspect]
     Active Substance: DICLOFENAC POTASSIUM
     Route: 065
  54. CORTISONE (HYDROCORTISONE) [Suspect]
     Active Substance: HYDROCORTISONE
     Indication: Rheumatoid arthritis
     Route: 065
  55. CORTISONE (HYDROCORTISONE) [Suspect]
     Active Substance: HYDROCORTISONE
     Route: 058
  56. CORTISONE (HYDROCORTISONE) [Suspect]
     Active Substance: HYDROCORTISONE
     Route: 003
  57. CORTISONE (HYDROCORTISONE) [Suspect]
     Active Substance: HYDROCORTISONE
     Route: 048
  58. CORTISONE (HYDROCORTISONE) [Suspect]
     Active Substance: HYDROCORTISONE
     Route: 065
  59. CORTISONE (HYDROCORTISONE) [Suspect]
     Active Substance: HYDROCORTISONE
     Route: 058
  60. ERELZI [Suspect]
     Active Substance: ETANERCEPT-SZZS
     Indication: Rheumatoid arthritis
     Route: 058
  61. ERELZI [Suspect]
     Active Substance: ETANERCEPT-SZZS
     Dosage: 50 MILLIGRAM, QWEEK
     Route: 058
  62. ERELZI [Suspect]
     Active Substance: ETANERCEPT-SZZS
     Indication: Rheumatoid arthritis
     Route: 058
  63. ERELZI [Suspect]
     Active Substance: ETANERCEPT-SZZS
     Route: 058
  64. RITUXIMAB [Suspect]
     Active Substance: RITUXIMAB
     Indication: Rheumatoid arthritis
     Route: 065
  65. RITUXIMAB [Suspect]
     Active Substance: RITUXIMAB
     Route: 042
  66. RITUXIMAB [Suspect]
     Active Substance: RITUXIMAB
     Route: 042
  67. RITUXIMAB [Suspect]
     Active Substance: RITUXIMAB
     Route: 058
  68. RITUXIMAB [Suspect]
     Active Substance: RITUXIMAB
     Route: 065
  69. RITUXIMAB [Suspect]
     Active Substance: RITUXIMAB
     Route: 041
  70. RITUXIMAB [Suspect]
     Active Substance: RITUXIMAB
     Route: 042
  71. RITUXIMAB [Suspect]
     Active Substance: RITUXIMAB
     Route: 058
  72. MYCOPHENOLATE MOFETIL [Suspect]
     Active Substance: MYCOPHENOLATE MOFETIL
     Indication: Product used for unknown indication
     Route: 065
  73. LEFLUNOMIDE [Suspect]
     Active Substance: LEFLUNOMIDE
     Indication: Rheumatoid arthritis
     Dosage: 10 MILLIGRAM, QD
     Route: 065
  74. LEFLUNOMIDE [Suspect]
     Active Substance: LEFLUNOMIDE
     Route: 065
  75. LEFLUNOMIDE [Suspect]
     Active Substance: LEFLUNOMIDE
     Route: 048
  76. LEFLUNOMIDE [Suspect]
     Active Substance: LEFLUNOMIDE
     Route: 048
  77. LEFLUNOMIDE [Suspect]
     Active Substance: LEFLUNOMIDE
     Dosage: 20 MILLIGRAM, QD
     Route: 065
  78. LEFLUNOMIDE [Suspect]
     Active Substance: LEFLUNOMIDE
     Route: 048
  79. LEFLUNOMIDE [Suspect]
     Active Substance: LEFLUNOMIDE
     Route: 065
  80. LEFLUNOMIDE [Suspect]
     Active Substance: LEFLUNOMIDE
     Route: 048

REACTIONS (53)
  - Psoriatic arthropathy [Fatal]
  - Muscle injury [Fatal]
  - Pustular psoriasis [Fatal]
  - Psoriasis [Fatal]
  - Pyrexia [Fatal]
  - Rash [Fatal]
  - Peripheral venous disease [Fatal]
  - Pruritus [Fatal]
  - Stomatitis [Fatal]
  - Sleep disorder due to a general medical condition [Fatal]
  - Sleep disorder [Fatal]
  - Swelling [Fatal]
  - Subcutaneous drug absorption impaired [Fatal]
  - Rash vesicular [Fatal]
  - Rheumatic fever [Fatal]
  - Sinusitis [Fatal]
  - Nail disorder [Fatal]
  - Myositis [Fatal]
  - Oedema peripheral [Fatal]
  - Pain [Fatal]
  - Mobility decreased [Fatal]
  - Musculoskeletal stiffness [Fatal]
  - Muscle spasms [Fatal]
  - Pericarditis [Fatal]
  - Paraesthesia [Fatal]
  - Pain in extremity [Fatal]
  - Peripheral swelling [Fatal]
  - Night sweats [Fatal]
  - Obesity [Fatal]
  - Osteoarthritis [Fatal]
  - General symptom [Fatal]
  - Grip strength decreased [Fatal]
  - Gastrointestinal disorder [Fatal]
  - Headache [Fatal]
  - Gait disturbance [Fatal]
  - X-ray abnormal [Fatal]
  - Ill-defined disorder [Fatal]
  - Migraine [Fatal]
  - Hypersensitivity [Fatal]
  - Urticaria [Fatal]
  - Type 2 diabetes mellitus [Fatal]
  - Vomiting [Fatal]
  - Swollen joint count increased [Fatal]
  - Wheezing [Fatal]
  - Taste disorder [Fatal]
  - Weight decreased [Fatal]
  - Weight increased [Fatal]
  - Pneumonia [Fatal]
  - Wound infection [Fatal]
  - Nasopharyngitis [Fatal]
  - Product use in unapproved indication [Fatal]
  - Intentional product use issue [Fatal]
  - Product quality issue [Fatal]
